FAERS Safety Report 4445099-1 (Version None)
Quarter: 2004Q3

REPORT INFORMATION
  Report Type: 
  Country: None (occurrence: None)
  Receive Date: 20040907
  Receipt Date: 20040820
  Transmission Date: 20050211
  Serious: Yes (Death)
  Sender: FDA-Public Use
  Company Number: L04-ESP-03962-15

PATIENT
  Age: 56 Year
  Sex: Male

DRUGS (4)
  1. CITALOPRAM [Suspect]
  2. ALCOHOL [Suspect]
  3. NORDIAZEPAM [Suspect]
  4. METHOTRIMEPRAZINE [Suspect]

REACTIONS (4)
  - BLOOD ALCOHOL INCREASED [None]
  - COMPLETED SUICIDE [None]
  - POISONING [None]
  - TOXICOLOGIC TEST ABNORMAL [None]
